FAERS Safety Report 7399356-X (Version None)
Quarter: 2011Q1

REPORT INFORMATION
  Report Type: 
  Country: None (occurrence: None)
  Receive Date: 20110328
  Receipt Date: 20110322
  Transmission Date: 20110831
  Serious: Yes (Hospitalization)
  Sender: FDA-Public Use
  Company Number: WAES 1103FRA00090

PATIENT
  Age: 31 Year
  Sex: Male

DRUGS (7)
  1. RIFAMPIN [Suspect]
     Indication: TUBERCULOSIS
     Dosage: 600 MG/DAILY PO
     Route: 048
     Dates: start: 20110201
  2. TAB RALTEGRAVIR POTASSIUM [Suspect]
     Indication: HIV INFECTION
     Dosage: 400 MG/BID PO
     Route: 048
     Dates: start: 20110214
  3. PYRAZINAMIDE [Suspect]
     Indication: TUBERCULOSIS
     Dosage: 600 MG/DAILY PO
     Route: 048
     Dates: start: 20110201
  4. ETHAMBUTOL HYDROCHLORIDE [Suspect]
     Indication: TUBERCULOSIS
     Dosage: 1100 MG/DAILY PO
     Route: 048
     Dates: start: 20110201
  5. TAB TENOFOVIR [Suspect]
     Indication: HIV INFECTION
     Dosage: 300 MG/DAILY PO
     Route: 048
     Dates: start: 20110214
  6. LAMIVUDINE [Suspect]
     Indication: HIV INFECTION
     Dosage: 300 MG/DAILY PO
     Route: 048
     Dates: start: 20110214
  7. ISONIAZID [Suspect]
     Indication: TUBERCULOSIS
     Dosage: 300 MG/DAY PO
     Route: 048
     Dates: start: 20110201

REACTIONS (1)
  - DEEP VEIN THROMBOSIS [None]
